FAERS Safety Report 5241061-X (Version None)
Quarter: 2007Q1

REPORT INFORMATION
  Report Type: 
  Country: None (occurrence: None)
  Receive Date: 20070214
  Receipt Date: 20070214
  Transmission Date: 20070707
  Serious: Yes (Hospitalization, Other)
  Sender: FDA-Public Use
  Company Number: None

PATIENT
  Age: 72 Year
  Sex: Male
  Weight: 98.4 kg

DRUGS (13)
  1. HEPARIN [Suspect]
     Indication: DEEP VEIN THROMBOSIS
     Dosage: IV (OUTSIDE HOSPITAL)
     Route: 042
  2. APAP TAB [Concomitant]
  3. AMLODIPINE [Concomitant]
  4. ASPIRIN [Concomitant]
  5. COUMADIN [Concomitant]
  6. HYDRALAZINE HCL [Concomitant]
  7. ACETAMINOPHEN AND HYDROCODONE BITARTRATE [Concomitant]
  8. LEVOTHYROXINE SODIUM [Concomitant]
  9. OMEPRAZOLE [Concomitant]
  10. SIMVASTATIN [Concomitant]
  11. TERAZOSIN HCL [Concomitant]
  12. GLIPIZIDE [Concomitant]
  13. ROSIGLITAZONE [Concomitant]

REACTIONS (1)
  - THROMBOCYTOPENIA [None]
